FAERS Safety Report 12930875 (Version 2)
Quarter: 2016Q4

REPORT INFORMATION
  Report Type: Report from Study
  Country: US (occurrence: US)
  Receive Date: 20161110
  Receipt Date: 20161123
  Transmission Date: 20170207
  Serious: Yes (Death, Hospitalization, Other)
  Sender: FDA-Public Use
  Company Number: US-ALEXION PHARMACEUTICALS INC.-A201608567

PATIENT
  Sex: Male

DRUGS (1)
  1. SOLIRIS [Suspect]
     Active Substance: ECULIZUMAB
     Indication: HAEMOLYTIC URAEMIC SYNDROME
     Route: 042

REACTIONS (8)
  - Vomiting [Unknown]
  - Cerebral thrombosis [Unknown]
  - Asthenia [Unknown]
  - Infection [Unknown]
  - Cerebrovascular accident [Not Recovered/Not Resolved]
  - Confusional state [Unknown]
  - Myocardial infarction [Fatal]
  - Myalgia [Unknown]

NARRATIVE: CASE EVENT DATE: 201611
